FAERS Safety Report 7035724-3 (Version None)
Quarter: 2010Q4

REPORT INFORMATION
  Report Type: 
  Country: None (occurrence: None)
  Receive Date: 20101008
  Receipt Date: 20101001
  Transmission Date: 20110411
  Serious: Yes (Other)
  Sender: FDA-Public Use
  Company Number: JP-BRISTOL-MYERS SQUIBB COMPANY-15323207

PATIENT
  Age: 37 Year
  Sex: Female

DRUGS (6)
  1. ABILIFY [Suspect]
     Indication: SCHIZOPHRENIA
     Route: 048
     Dates: start: 20070404
  2. RIVOTRIL [Suspect]
     Dosage: POWDER
     Route: 048
  3. ZYPREXA [Suspect]
     Dosage: TABLET.
     Route: 048
  4. PAXIL [Suspect]
     Dosage: TABLET.
     Route: 048
  5. RHYTHMIN [Suspect]
     Dosage: TABLET.
     Route: 048
  6. ZOLOFT [Suspect]
     Dosage: TABLET.
     Route: 048

REACTIONS (2)
  - ABORTION [None]
  - PREGNANCY [None]
